FAERS Safety Report 25202945 (Version 2)
Quarter: 2025Q2

REPORT INFORMATION
  Report Type: Spontaneous
  Country: US (occurrence: US)
  Receive Date: 20250416
  Receipt Date: 20250425
  Transmission Date: 20250716
  Serious: Yes (Hospitalization)
  Sender: TEVA
  Company Number: US-TEVA-VS-3319854

PATIENT
  Age: 16 Year
  Sex: Male

DRUGS (7)
  1. ALPRAZOLAM [Suspect]
     Active Substance: ALPRAZOLAM
     Indication: Product used for unknown indication
     Route: 065
  2. DEXTROMETHORPHAN HYDROBROMIDE [Suspect]
     Active Substance: DEXTROMETHORPHAN HYDROBROMIDE
     Indication: Product used for unknown indication
     Route: 048
  3. GUANFACINE [Suspect]
     Active Substance: GUANFACINE
     Indication: Bipolar II disorder
     Route: 065
  4. NALTREXONE [Suspect]
     Active Substance: NALTREXONE
     Indication: Substance use disorder
     Route: 065
  5. ESCITALOPRAM [Concomitant]
     Active Substance: ESCITALOPRAM OXALATE
     Indication: Bipolar II disorder
     Route: 065
  6. QUETIAPINE [Suspect]
     Active Substance: QUETIAPINE
     Indication: Bipolar II disorder
     Route: 065
  7. DEXTROMETHORPHAN HYDROBROMIDE [Suspect]
     Active Substance: DEXTROMETHORPHAN HYDROBROMIDE
     Indication: Product used for unknown indication
     Route: 048

REACTIONS (13)
  - Substance abuse [Unknown]
  - Accidental overdose [Unknown]
  - Somnolence [Unknown]
  - Intentional overdose [Unknown]
  - Off label use [Unknown]
  - Treatment noncompliance [Unknown]
  - Substance use disorder [Recovering/Resolving]
  - Distractibility [Recovered/Resolved]
  - Toxicity to various agents [Recovered/Resolved]
  - Obsessive thoughts [Recovered/Resolved]
  - Behaviour disorder [Recovered/Resolved]
  - Paranoia [Recovered/Resolved]
  - Pressure of speech [Recovered/Resolved]
